FAERS Safety Report 25189757 (Version 1)
Quarter: 2025Q2

REPORT INFORMATION
  Report Type: Spontaneous
  Country: US (occurrence: None)
  Receive Date: 20250411
  Receipt Date: 20250411
  Transmission Date: 20250716
  Serious: Yes (Life-Threatening, Disabling)
  Sender: FDA-CTU
  Company Number: None

PATIENT
  Age: 45 Year
  Sex: Female
  Weight: 54 kg

DRUGS (4)
  1. DOXYCYCLINE [Suspect]
     Active Substance: DOXYCYCLINE
     Indication: Blood urea
     Dates: start: 20250326, end: 20250331
  2. PAROXETINE [Concomitant]
     Active Substance: PAROXETINE
  3. AMITRIPTYLINE [Concomitant]
     Active Substance: AMITRIPTYLINE
  4. DIVALPROEX SODIUM [Concomitant]
     Active Substance: DIVALPROEX SODIUM

REACTIONS (9)
  - Mania [None]
  - Head discomfort [None]
  - Cognitive disorder [None]
  - Bradyphrenia [None]
  - Insomnia [None]
  - Depression [None]
  - Brain fog [None]
  - Sleep disorder [None]
  - Fatigue [None]

NARRATIVE: CASE EVENT DATE: 20250326
